FAERS Safety Report 6300238-2 (Version None)
Quarter: 2009Q3

REPORT INFORMATION
  Report Type: 
  Country: None (occurrence: None)
  Receive Date: 20090803
  Receipt Date: 20090720
  Transmission Date: 20100115
  Serious: Yes (Other)
  Sender: FDA-Public Use
  Company Number: 338898

PATIENT
  Age: 49 Year
  Sex: Female

DRUGS (4)
  1. PACLITAXEL [Suspect]
     Dosage: 318 MG, INTRAVENOUS
     Route: 042
     Dates: start: 20090710, end: 20090710
  2. DEXAMETHASONE [Concomitant]
  3. CHLORPHENIRAMINE MALEATE [Concomitant]
  4. PALONOSETRON [Concomitant]

REACTIONS (3)
  - BRONCHOSPASM [None]
  - CYANOSIS [None]
  - RESPIRATORY FAILURE [None]
